FAERS Safety Report 15776643 (Version 1)
Quarter: 2018Q4

REPORT INFORMATION
  Report Type: Spontaneous
  Country: US (occurrence: US)
  Receive Date: 20181231
  Receipt Date: 20181231
  Transmission Date: 20190205
  Serious: No
  Sender: FDA-Public Use
  Company Number: US-PFIZER INC-2018532257

PATIENT
  Sex: Female

DRUGS (3)
  1. BELKYRA [Suspect]
     Active Substance: DEOXYCHOLIC ACID
     Dosage: 0.2 ML, UNK, (2 ML, 4 VIALS)
     Dates: start: 201812
  2. CHLORHEXIDINE [Suspect]
     Active Substance: CHLORHEXIDINE
     Dosage: UNK
  3. LIDOCAINE HCL [Suspect]
     Active Substance: LIDOCAINE HYDROCHLORIDE
     Indication: ANALGESIC THERAPY
     Dosage: UNK, [1% LA INJECTED SMALL BLEBS]

REACTIONS (1)
  - Swelling [Unknown]
